FAERS Safety Report 4717386-0 (Version None)
Quarter: 2005Q3

REPORT INFORMATION
  Report Type: 
  Country: None (occurrence: None)
  Receive Date: 20050711
  Receipt Date: 20041217
  Transmission Date: 20060218
  Serious: No
  Sender: FDA-Public Use
  Company Number: A03200404300

PATIENT
  Age: 65 Year
  Sex: Male
  Weight: 80 kg

DRUGS (1)
  1. UROXATRAL [Suspect]
     Indication: ERECTILE DYSFUNCTION
     Dosage: 10 MG OD - ORAL
     Route: 048

REACTIONS (3)
  - ARTHRALGIA [None]
  - MUSCULOSKELETAL STIFFNESS [None]
  - PRURITUS [None]
